FAERS Safety Report 6763292-X (Version None)
Quarter: 2010Q2

REPORT INFORMATION
  Report Type: 
  Country: None (occurrence: None)
  Receive Date: 20100608
  Receipt Date: 20100608
  Transmission Date: 20101027
  Serious: Yes (Hospitalization)
  Sender: FDA-Public Use
  Company Number: None

PATIENT
  Sex: Male
  Weight: 73.5 kg

DRUGS (5)
  1. CISPLATIN [Suspect]
     Dosage: 400 MG
     Dates: end: 20100517
  2. ATIVAN [Concomitant]
  3. DEXAMETHASONE [Concomitant]
  4. DURAGESIC-100 [Concomitant]
  5. ZOFRAN [Concomitant]

REACTIONS (13)
  - ASPIRATION [None]
  - DYSPHAGIA [None]
  - FAILURE TO THRIVE [None]
  - HYPOALBUMINAEMIA [None]
  - HYPOKALAEMIA [None]
  - LEUKOPENIA [None]
  - LYMPHOPENIA [None]
  - MOBILITY DECREASED [None]
  - ORAL CANDIDIASIS [None]
  - PLATELET COUNT DECREASED [None]
  - PROTEIN TOTAL DECREASED [None]
  - TREATMENT NONCOMPLIANCE [None]
  - WEIGHT DECREASED [None]
